FAERS Safety Report 4616659-X (Version None)
Quarter: 2005Q2

REPORT INFORMATION
  Report Type: 
  Country: None (occurrence: None)
  Receive Date: 20050311
  Receipt Date: 20050113
  Transmission Date: 20051028
  Serious: No
  Sender: FDA-Public Use
  Company Number: 2005-00057

PATIENT
  Age: 62 Year
  Sex: Male
  Weight: 68 kg

DRUGS (1)
  1. VELCADE [Suspect]
     Indication: LYMPHOMA
     Dosage: 1.30 MG/M2, INTRAVENOUS
     Route: 042
     Dates: start: 20040401

REACTIONS (1)
  - COUGH [None]
